FAERS Safety Report 7279293-1 (Version None)
Quarter: 2011Q1

REPORT INFORMATION
  Report Type: 
  Country: None (occurrence: None)
  Receive Date: 20110207
  Receipt Date: 20110204
  Transmission Date: 20110831
  Serious: Yes (Hospitalization)
  Sender: FDA-Public Use
  Company Number: US-AMGEN-USACT2011006818

PATIENT
  Age: 75 Year
  Sex: Male
  Weight: 64.5 kg

DRUGS (10)
  1. LOVENOX [Concomitant]
     Dosage: 60 MG, UNK
  2. PANITUMUMAB [Suspect]
     Indication: OESOPHAGEAL ADENOCARCINOMA
     Dosage: UNK
     Dates: start: 20100501
  3. CISPLATIN [Suspect]
     Dosage: UNK
     Dates: start: 20100501
  4. METOPROLOL TARTRATE [Concomitant]
     Dosage: 12.5 MG, UNK
  5. DOCETAXEL [Suspect]
     Dosage: UNK
     Route: 042
     Dates: start: 20100501
  6. FLOMAX [Concomitant]
  7. ROXICET [Concomitant]
     Route: 048
  8. PREVACID [Concomitant]
     Dosage: 30 MG, UNK
  9. LASIX [Concomitant]
     Dosage: 40 MG, UNK
     Route: 048
  10. XOPENEX [Concomitant]
     Route: 055

REACTIONS (2)
  - DYSPNOEA [None]
  - LUNG INFECTION [None]
